FAERS Safety Report 14944537 (Version 4)
Quarter: 2018Q2

REPORT INFORMATION
  Report Type: Spontaneous
  Country: BR (occurrence: BR)
  Receive Date: 20180529
  Receipt Date: 20180613
  Transmission Date: 20180711
  Serious: Yes (Hospitalization)
  Sender: FDA-Public Use
  Company Number: BR-B.I. PHARMACEUTICALS,INC./RIDGEFIELD-2018-BI-027351

PATIENT
  Age: 66 Year
  Sex: Female
  Weight: 98 kg

DRUGS (11)
  1. FUROSEMIDA [Concomitant]
     Active Substance: FUROSEMIDE
     Indication: HYPERTENSION
     Route: 048
     Dates: start: 1985
  2. ISOSORBIDA [Concomitant]
     Indication: CARDIAC DISORDER
     Route: 048
     Dates: start: 20170907
  3. ENALAPRIL [Concomitant]
     Active Substance: ENALAPRIL
     Indication: HYPERTENSION
     Route: 048
     Dates: start: 1985
  4. CLENIL [Concomitant]
     Active Substance: BECLOMETHASONE DIPROPIONATE
     Route: 045
     Dates: start: 2017
  5. ATENSINA [Suspect]
     Active Substance: CLONIDINE
     Indication: HYPERTENSION
     Route: 048
     Dates: start: 1998, end: 201803
  6. ATENSINA [Suspect]
     Active Substance: CLONIDINE
     Route: 048
     Dates: start: 201803, end: 20180604
  7. CLENIL [Concomitant]
     Active Substance: BECLOMETHASONE DIPROPIONATE
     Indication: BRONCHITIS
     Dosage: PUFF
     Route: 055
     Dates: start: 2017
  8. OMEPRAZOL [Concomitant]
     Active Substance: OMEPRAZOLE
     Indication: DYSPEPSIA
     Dosage: 30 YEARS AGO (MORE OR LESS)
     Route: 048
  9. AMLODIPINA [Concomitant]
     Active Substance: AMLODIPINE BESYLATE
     Indication: HYPERTENSION
     Route: 048
     Dates: start: 1985
  10. AAS [Concomitant]
     Active Substance: ASPIRIN
     Indication: ANTICOAGULANT THERAPY
     Route: 048
     Dates: start: 1985
  11. ATENOLOL. [Concomitant]
     Active Substance: ATENOLOL
     Indication: DRUG THERAPY
     Route: 048
     Dates: start: 1985

REACTIONS (16)
  - Venous occlusion [Not Recovered/Not Resolved]
  - Lacrimation increased [Not Recovered/Not Resolved]
  - Rhinorrhoea [Not Recovered/Not Resolved]
  - Chills [Not Recovered/Not Resolved]
  - Rhinorrhoea [Not Recovered/Not Resolved]
  - Renal mass [Not Recovered/Not Resolved]
  - Diabetes mellitus [Not Recovered/Not Resolved]
  - Hypersomnia [Not Recovered/Not Resolved]
  - Arrhythmia [Not Recovered/Not Resolved]
  - Fatigue [Not Recovered/Not Resolved]
  - Influenza [Not Recovered/Not Resolved]
  - Tremor [Not Recovered/Not Resolved]
  - Chills [Not Recovered/Not Resolved]
  - Blood cholesterol increased [Not Recovered/Not Resolved]
  - Blood creatinine increased [Unknown]
  - Sneezing [Not Recovered/Not Resolved]

NARRATIVE: CASE EVENT DATE: 1998
